FAERS Safety Report 17745318 (Version 1)
Quarter: 2020Q2

REPORT INFORMATION
  Report Type: Report from Study
  Country: US (occurrence: US)
  Receive Date: 20200505
  Receipt Date: 20200505
  Transmission Date: 20200714
  Serious: Yes (Death, Hospitalization)
  Sender: FDA-Public Use
  Company Number: US-MYLANLABS-2020M1043489

PATIENT
  Age: 61 Year
  Sex: Female

DRUGS (4)
  1. TACROLIMUS. [Suspect]
     Active Substance: TACROLIMUS
     Indication: IMMUNOSUPPRESSANT DRUG THERAPY
     Dosage: UNK
     Route: 065
  2. MYCOPHENOLATE MOFETIL. [Suspect]
     Active Substance: MYCOPHENOLATE MOFETIL
     Indication: IMMUNOSUPPRESSANT DRUG THERAPY
     Dosage: UNK
     Route: 065
  3. PREDNISONE. [Suspect]
     Active Substance: PREDNISONE
     Indication: IMMUNOSUPPRESSANT DRUG THERAPY
     Dosage: UNK
     Route: 065
  4. ACYCLOVIR                          /00587301/ [Concomitant]
     Active Substance: ACYCLOVIR
     Indication: PROPHYLAXIS
     Dosage: 400 MILLIGRAM, BID
     Route: 065

REACTIONS (13)
  - Hepatic necrosis [Fatal]
  - Respiratory failure [Fatal]
  - Clostridium difficile colitis [Unknown]
  - Abdominal wall infection [Unknown]
  - Sepsis syndrome [Fatal]
  - Atelectasis [Fatal]
  - Encephalitis cytomegalovirus [Unknown]
  - Toxoplasmosis [Fatal]
  - Pleural effusion [Fatal]
  - Klebsiella infection [Unknown]
  - Enterococcal infection [Unknown]
  - Cholestasis [Fatal]
  - Cytomegalovirus infection [Unknown]
